FAERS Safety Report 6699471-X (Version None)
Quarter: 2010Q2

REPORT INFORMATION
  Report Type: 
  Country: None (occurrence: None)
  Receive Date: 20100426
  Receipt Date: 20100416
  Transmission Date: 20101027
  Serious: Yes (Hospitalization)
  Sender: FDA-Public Use
  Company Number: SPV1-2010-00713

PATIENT
  Age: 73 Year
  Sex: Male
  Weight: 81.6 kg

DRUGS (1)
  1. LIALDA [Suspect]
     Indication: COLITIS ULCERATIVE
     Dosage: 1.2 G, 4X/DAY, QID, ORAL
     Route: 048
     Dates: start: 20080101

REACTIONS (3)
  - GASTRIC ULCER [None]
  - PNEUMONIA [None]
  - RECTAL HAEMORRHAGE [None]
